FAERS Safety Report 4934293-9 (Version None)
Quarter: 2006Q1

REPORT INFORMATION
  Report Type: 
  Country: None (occurrence: None)
  Receive Date: 20060303
  Receipt Date: 20060220
  Transmission Date: 20060701
  Serious: Yes (Hospitalization)
  Sender: FDA-Public Use
  Company Number: S06-SWE-00630-01

PATIENT
  Age: 28 Year
  Sex: Female

DRUGS (3)
  1. CITALOPRAM HYDROBROMIDE [Suspect]
     Indication: DEPRESSION
     Dosage: 40 MG QD PO
     Route: 048
  2. TRAMADOL HYDROCHLORIDE [Suspect]
  3. LIMOVAN (ZOPICLONE) [Concomitant]

REACTIONS (5)
  - CONVULSION [None]
  - NERVOUS SYSTEM DISORDER [None]
  - OVERDOSE [None]
  - TACHYCARDIA [None]
  - VOMITING [None]
